FAERS Safety Report 15543559 (Version 1)
Quarter: 2018Q4

REPORT INFORMATION
  Report Type: Spontaneous
  Country: US (occurrence: US)
  Receive Date: 20181023
  Receipt Date: 20181023
  Transmission Date: 20190205
  Serious: No
  Sender: FDA-Public Use
  Company Number: US-SA-2018SA292271

PATIENT
  Sex: Female

DRUGS (1)
  1. AUBAGIO [Suspect]
     Active Substance: TERIFLUNOMIDE
     Dosage: 14 MG, QD
     Dates: start: 20071124

REACTIONS (4)
  - Dehydration [Unknown]
  - Vomiting [Unknown]
  - Nausea [Unknown]
  - Product use issue [Unknown]
